FAERS Safety Report 8919254 (Version 1)
Quarter: 2012Q4

REPORT INFORMATION
  Report Type: 
  Country: FR (occurrence: FR)
  Receive Date: 20121121
  Receipt Date: 20121121
  Transmission Date: 20130627
  Serious: Yes (Hospitalization, Other)
  Sender: FDA-Public Use
  Company Number: FR-PFIZER INC-2012284846

PATIENT
  Age: 76 Year
  Sex: Female

DRUGS (6)
  1. AROMASINE [Suspect]
     Indication: MAMMARY DUCTAL INTRAEPITHELIAL NEOPLASIA
     Dosage: UNK
     Route: 048
     Dates: start: 201102, end: 20120930
  2. LYRICA [Concomitant]
     Dosage: UNK
     Route: 048
  3. LORAZEPAM [Concomitant]
     Dosage: UNK
     Route: 048
  4. FUROSEMIDE [Concomitant]
     Dosage: UNK
     Route: 048
  5. ACEBUTOLOL [Concomitant]
     Dosage: UNK
     Route: 048
  6. FLECAINE [Concomitant]
     Dosage: UNK
     Route: 048

REACTIONS (2)
  - Ischaemic stroke [Recovered/Resolved]
  - Hemiparesis [Recovered/Resolved]
